FAERS Safety Report 16362352 (Version 2)
Quarter: 2019Q2

REPORT INFORMATION
  Report Type: Spontaneous
  Country: US (occurrence: US)
  Receive Date: 20190528
  Receipt Date: 20190614
  Transmission Date: 20190711
  Serious: No
  Sender: FDA-Public Use
  Company Number: US-PFIZER INC-2019225500

PATIENT
  Age: 80 Year
  Sex: Female

DRUGS (1)
  1. VFEND [Suspect]
     Active Substance: VORICONAZOLE
     Indication: ASPERGILLUS INFECTION
     Dosage: 300 MG, 2X/DAY (TAKE 6 TABS PO  EVERY 12HRS (9A-9P))
     Route: 048

REACTIONS (1)
  - Drug intolerance [Unknown]
